FAERS Safety Report 11539080 (Version 1)
Quarter: 2015Q3

REPORT INFORMATION
  Report Type: Spontaneous
  Country: US (occurrence: None)
  Receive Date: 20150922
  Receipt Date: 20150922
  Transmission Date: 20151125
  Serious: No
  Sender: FDA-Public Use
  Company Number: None

PATIENT
  Age: 8 Year
  Sex: Male

DRUGS (1)
  1. DAYTRANA [Suspect]
     Active Substance: METHYLPHENIDATE
     Indication: ATTENTION DEFICIT/HYPERACTIVITY DISORDER
     Dosage: PATCH
     Route: 062
     Dates: start: 20150909, end: 20150918

REACTIONS (5)
  - Product outer packaging issue [None]
  - Product adhesion issue [None]
  - Drug ineffective [None]
  - Product packaging issue [None]
  - Liquid product physical issue [None]

NARRATIVE: CASE EVENT DATE: 20150909
